FAERS Safety Report 6564679-0 (Version None)
Quarter: 2010Q1

REPORT INFORMATION
  Report Type: 
  Country: None (occurrence: None)
  Receive Date: 20100201
  Receipt Date: 20100121
  Transmission Date: 20100710
  Serious: Yes (Hospitalization, Other)
  Sender: FDA-Public Use
  Company Number: ZA-SANOFI-AVENTIS-2010SA004552

PATIENT
  Age: 33 Year
  Sex: Male
  Weight: 60.5 kg

DRUGS (5)
  1. BLINDED THERAPY [Suspect]
     Indication: PULMONARY TUBERCULOSIS
     Dates: start: 20090514, end: 20091113
  2. BLINDED THERAPY [Suspect]
     Dates: start: 20090514, end: 20091113
  3. BLINDED THERAPY [Suspect]
     Dates: start: 20090514, end: 20091113
  4. PYRAZINAMIDE [Suspect]
     Indication: PULMONARY TUBERCULOSIS
     Dates: start: 20090514, end: 20091113
  5. BLINDED THERAPY [Suspect]
     Dates: start: 20090514, end: 20091113

REACTIONS (6)
  - COUGH [None]
  - FATIGUE [None]
  - HEADACHE [None]
  - PULMONARY TUBERCULOSIS [None]
  - PYREXIA [None]
  - WEIGHT DECREASED [None]
